FAERS Safety Report 15684082 (Version 2)
Quarter: 2019Q1

REPORT INFORMATION
  Report Type: Spontaneous
  Country: AU (occurrence: AU)
  Receive Date: 20181204
  Receipt Date: 20190101
  Transmission Date: 20190417
  Serious: Yes (Life-Threatening, Hospitalization, Other)
  Sender: FDA-Public Use
  Company Number: AU-EMD SERONO-9055472

PATIENT
  Age: 73 Year
  Sex: Female
  Weight: 72 kg

DRUGS (6)
  1. ROCURONIUM [Suspect]
     Active Substance: ROCURONIUM BROMIDE
     Indication: INDUCTION AND MAINTENANCE OF ANAESTHESIA
     Dosage: 50 (UNSPECIFIED UNITS)
     Route: 042
     Dates: start: 20181126, end: 20181126
  2. REBIF [Suspect]
     Active Substance: INTERFERON BETA-1A
     Indication: PRODUCT USED FOR UNKNOWN INDICATION
  3. FENTANYL. [Concomitant]
     Active Substance: FENTANYL
     Indication: INDUCTION AND MAINTENANCE OF ANAESTHESIA
     Dosage: 50 (UNSPECIFIED UNITS)
     Route: 042
     Dates: start: 20181126, end: 20181126
  4. CEPHAZOLIN [Suspect]
     Active Substance: CEFAZOLIN
     Indication: SURGERY
     Route: 042
     Dates: start: 20181126, end: 20181126
  5. MIDAZOLAM [Concomitant]
     Active Substance: MIDAZOLAM HYDROCHLORIDE
     Indication: INDUCTION AND MAINTENANCE OF ANAESTHESIA
     Route: 042
     Dates: start: 20181126, end: 20181126
  6. DEXAMETHASONE. [Concomitant]
     Active Substance: DEXAMETHASONE
     Indication: INDUCTION AND MAINTENANCE OF ANAESTHESIA
     Route: 042
     Dates: start: 20181126, end: 20181126

REACTIONS (7)
  - Gallbladder disorder [Recovered/Resolved]
  - Ill-defined disorder [Unknown]
  - Pulseless electrical activity [Unknown]
  - Urticaria [Recovered/Resolved]
  - Device use error [Recovered/Resolved]
  - Hypotension [Recovered/Resolved]
  - Cardiac output decreased [Recovered/Resolved]

NARRATIVE: CASE EVENT DATE: 20181126
